FAERS Safety Report 18791486 (Version 1)
Quarter: 2021Q1

REPORT INFORMATION
  Report Type: Spontaneous
  Country: IN (occurrence: IN)
  Receive Date: 20210127
  Receipt Date: 20210127
  Transmission Date: 20210419
  Serious: Yes (Hospitalization, Other)
  Sender: FDA-Public Use
  Company Number: IN-LUPIN PHARMACEUTICALS INC.-2021-00478

PATIENT
  Age: 59 Year
  Sex: Male

DRUGS (11)
  1. CEFTRIAXONE. [Suspect]
     Active Substance: CEFTRIAXONE
     Indication: PULMONARY NOCARDIOSIS
     Dosage: UNK
     Route: 065
  2. DOXYCYCLINE. [Suspect]
     Active Substance: DOXYCYCLINE
     Indication: PULMONARY NOCARDIOSIS
     Dosage: UNK
     Route: 065
  3. AZITHROMYCIN ANHYDROUS. [Suspect]
     Active Substance: AZITHROMYCIN ANHYDROUS
     Indication: PULMONARY NOCARDIOSIS
     Dosage: UNK
     Route: 065
  4. LINEZOLID. [Suspect]
     Active Substance: LINEZOLID
     Indication: PULMONARY NOCARDIOSIS
     Dosage: UNK
     Route: 048
  5. MEROPENEM. [Concomitant]
     Active Substance: MEROPENEM
     Indication: PULMONARY NOCARDIOSIS
     Dosage: UNK
     Route: 042
  6. INSULIN [Concomitant]
     Active Substance: INSULIN NOS
     Indication: DIABETES MELLITUS
     Dosage: UNK
     Route: 065
  7. AMPHOTERICIN B, LIPOSOME [Concomitant]
     Active Substance: AMPHOTERICIN B
     Indication: MUCORMYCOSIS
  8. POSACONAZOLE [Concomitant]
     Active Substance: POSACONAZOLE
     Indication: BRONCHOPULMONARY ASPERGILLOSIS
     Dosage: UNK
     Route: 048
  9. POSACONAZOLE [Concomitant]
     Active Substance: POSACONAZOLE
     Indication: MUCORMYCOSIS
  10. SULFAMETHOXAZOLE AND TRIMETHOPRIM [Suspect]
     Active Substance: SULFAMETHOXAZOLE\TRIMETHOPRIM
     Indication: PULMONARY NOCARDIOSIS
     Dosage: UNK
     Route: 065
  11. AMPHOTERICIN B, LIPOSOME [Concomitant]
     Active Substance: AMPHOTERICIN B
     Indication: BRONCHOPULMONARY ASPERGILLOSIS
     Dosage: UNK
     Route: 065

REACTIONS (3)
  - Hyperkalaemia [Unknown]
  - Therapy non-responder [Unknown]
  - Anaemia [Unknown]
